FAERS Safety Report 4651805-3 (Version None)
Quarter: 2005Q2

REPORT INFORMATION
  Report Type: 
  Country: None (occurrence: None)
  Receive Date: 20050504
  Receipt Date: 20050321
  Transmission Date: 20051028
  Serious: Yes (Other)
  Sender: FDA-Public Use
  Company Number: PHEH2005US03417

PATIENT
  Sex: Female

DRUGS (1)
  1. ZOMETA [Suspect]
     Dates: end: 20041001

REACTIONS (16)
  - APHTHOUS STOMATITIS [None]
  - BONE DEBRIDEMENT [None]
  - BONE DISORDER [None]
  - DISCOMFORT [None]
  - FISTULA [None]
  - HYPERBARIC OXYGEN THERAPY [None]
  - HYPOAESTHESIA [None]
  - HYPOAESTHESIA ORAL [None]
  - INFECTION [None]
  - ORAL PAIN [None]
  - OSTEONECROSIS [None]
  - PAIN [None]
  - PHARYNGOLARYNGEAL PAIN [None]
  - PRIMARY SEQUESTRUM [None]
  - SWELLING [None]
  - TOOTH EXTRACTION [None]
